FAERS Safety Report 7363950-2 (Version None)
Quarter: 2011Q1

REPORT INFORMATION
  Report Type: 
  Country: None (occurrence: None)
  Receive Date: 20110321
  Receipt Date: 20110308
  Transmission Date: 20110831
  Serious: Yes (Hospitalization)
  Sender: FDA-Public Use
  Company Number: US-ACTELION-A-US2011-44986

PATIENT

DRUGS (2)
  1. TRACLEER [Suspect]
     Indication: PULMONARY ARTERIAL HYPERTENSION
     Dosage: UNK
     Route: 048
     Dates: start: 20090728
  2. IRON [Concomitant]

REACTIONS (4)
  - SURGERY [None]
  - ANAEMIA [None]
  - ABDOMINAL DISCOMFORT [None]
  - INTERVERTEBRAL DISC DEGENERATION [None]
